FAERS Safety Report 17413065 (Version 1)
Quarter: 2020Q1

REPORT INFORMATION
  Report Type: Spontaneous
  Country: ES (occurrence: ES)
  Receive Date: 20200213
  Receipt Date: 20200213
  Transmission Date: 20200409
  Serious: Yes (Other)
  Sender: FDA-Public Use
  Company Number: ES-MICRO LABS LIMITED-ML2020-00380

PATIENT
  Age: 57 Year
  Sex: Male

DRUGS (4)
  1. CLOXACILLIN [Suspect]
     Active Substance: CLOXACILLIN
     Indication: PYOMYOSITIS
     Dosage: 2G EVERY 4 HOURS
  2. CLINDAMYCIN. [Suspect]
     Active Substance: CLINDAMYCIN
     Indication: PYOMYOSITIS
  3. CEFTRIAXONE. [Suspect]
     Active Substance: CEFTRIAXONE
     Indication: PYOMYOSITIS
     Dosage: 2 G EVERY 24 HOURS
  4. VANCOMYCIN [Suspect]
     Active Substance: VANCOMYCIN
     Indication: PYOMYOSITIS
     Dosage: ADJUSTED ACCORDING TO THE WEIGHT OF THE PATIENT

REACTIONS (2)
  - Drug ineffective [Unknown]
  - Disease progression [Recovered/Resolved]
